FAERS Safety Report 21069335 (Version 1)
Quarter: 2022Q3

REPORT INFORMATION
  Report Type: Spontaneous
  Country: US (occurrence: US)
  Receive Date: 20220712
  Receipt Date: 20220712
  Transmission Date: 20221026
  Serious: No
  Sender: FDA-Public Use
  Company Number: US-ASTELLAS-2022US004184

PATIENT
  Age: 83 Year
  Sex: Female

DRUGS (2)
  1. MYRBETRIQ [Suspect]
     Active Substance: MIRABEGRON
     Indication: Urinary tract infection
     Route: 065
     Dates: start: 20220131, end: 20220201
  2. MYRBETRIQ [Suspect]
     Active Substance: MIRABEGRON
     Indication: Dysuria

REACTIONS (1)
  - Off label use [Unknown]
